FAERS Safety Report 23772545 (Version 1)
Quarter: 2024Q2

REPORT INFORMATION
  Report Type: Spontaneous
  Country: RU (occurrence: RU)
  Receive Date: 20240423
  Receipt Date: 20240423
  Transmission Date: 20240716
  Serious: Yes (Life-Threatening, Hospitalization, Other)
  Sender: FDA-Public Use
  Company Number: RU-MLMSERVICE-20240404-4901792-1

PATIENT
  Age: 31 Year
  Sex: Female

DRUGS (4)
  1. VANCOMYCIN [Suspect]
     Active Substance: VANCOMYCIN
     Indication: Pyrexia
     Dosage: TWICE A DAY
     Dates: start: 20230529, end: 2023
  2. CEFTRIAXONE [Suspect]
     Active Substance: CEFTRIAXONE\CEFTRIAXONE SODIUM
     Indication: Pyrexia
     Dosage: TWICE A DAY
     Route: 030
     Dates: start: 202305, end: 2023
  3. CARBAMAZEPINE [Suspect]
     Active Substance: CARBAMAZEPINE
     Indication: Trigeminal neuralgia
     Dates: start: 20230424, end: 20230522
  4. CARBAMAZEPINE [Suspect]
     Active Substance: CARBAMAZEPINE
     Indication: Trigeminal neuralgia
     Dosage: SELF-REDUCTION
     Dates: start: 20230522, end: 20230529

REACTIONS (5)
  - Hepatic vascular disorder [Recovered/Resolved]
  - Drug-induced liver injury [Recovered/Resolved]
  - Drug reaction with eosinophilia and systemic symptoms [Recovered/Resolved]
  - Hepatitis acute [Recovered/Resolved]
  - Hepatic cytolysis [Recovered/Resolved]
